FAERS Safety Report 20482697 (Version 1)
Quarter: 2022Q1

REPORT INFORMATION
  Report Type: Spontaneous
  Country: US (occurrence: US)
  Receive Date: 20220217
  Receipt Date: 20220217
  Transmission Date: 20220423
  Serious: No
  Sender: FDA-Public Use
  Company Number: US-AMGEN-USASP2022027081

PATIENT
  Sex: Female

DRUGS (1)
  1. EVENITY [Suspect]
     Active Substance: ROMOSOZUMAB-AQQG
     Indication: Osteoporosis
     Dosage: UNK
     Route: 065
     Dates: start: 2021

REACTIONS (7)
  - Bone pain [Unknown]
  - Balance disorder [Unknown]
  - Dysphagia [Unknown]
  - Malaise [Unknown]
  - Palpitations [Unknown]
  - Nasal congestion [Unknown]
  - Muscle spasms [Unknown]
